FAERS Safety Report 7080876-2 (Version None)
Quarter: 2010Q4

REPORT INFORMATION
  Report Type: 
  Country: None (occurrence: None)
  Receive Date: 20101103
  Receipt Date: 20101019
  Transmission Date: 20110411
  Serious: Yes (Hospitalization, Other)
  Sender: FDA-Public Use
  Company Number: US-AMGEN-QUU432612

PATIENT

DRUGS (14)
  1. NPLATE [Suspect]
     Indication: IDIOPATHIC THROMBOCYTOPENIC PURPURA
     Dosage: 1 A?G/KG, UNK
     Dates: start: 20100622, end: 20100622
  2. NPLATE [Suspect]
     Dates: start: 20100622
  3. CORTICOSTEROID NOS [Concomitant]
     Dosage: 1 A?G/KG, UNK
     Dates: start: 20080925
  4. VASOTEC [Concomitant]
     Dosage: 2.5 MG, QD
  5. LEVOXYL [Concomitant]
     Dosage: 100 UNK, QD
  6. HUMALOG [Concomitant]
     Dosage: UNK UNK, PRN
  7. PREDNISONE [Concomitant]
     Dosage: 10 MG, PRN
  8. VITAMIN A [Concomitant]
     Dosage: UNK
  9. SIMVASTATIN [Concomitant]
     Dosage: 80 MG, UNK
  10. ENALAPRIL MALEATE [Concomitant]
     Dosage: 10 MG, QD
  11. PRILOSEC [Concomitant]
     Dosage: 20 MG, UNK
  12. HYDROCHLOROTHIAZIDE [Concomitant]
     Dosage: UNK UNK, QD
  13. TRAMADOL HCL [Concomitant]
     Dosage: UNK UNK, PRN
  14. ASPIRIN [Concomitant]
     Dosage: 325 UNK, UNK

REACTIONS (11)
  - AORTIC CALCIFICATION [None]
  - CEREBRAL ARTERY OCCLUSION [None]
  - CEREBRAL INFARCTION [None]
  - CEREBROVASCULAR ACCIDENT [None]
  - ELECTROCARDIOGRAM POOR R-WAVE PROGRESSION [None]
  - INTERNATIONAL NORMALISED RATIO DECREASED [None]
  - PROTHROMBIN TIME SHORTENED [None]
  - QRS AXIS ABNORMAL [None]
  - THALAMIC INFARCTION [None]
  - THROMBOSIS [None]
  - WHITE BLOOD CELL COUNT INCREASED [None]
